FAERS Safety Report 20083091 (Version 1)
Quarter: 2021Q4

REPORT INFORMATION
  Report Type: Report from Study
  Country: US (occurrence: US)
  Receive Date: 20211117
  Receipt Date: 20211117
  Transmission Date: 20220303
  Serious: Yes (Other)
  Sender: FDA-Public Use
  Company Number: US-ABBVIE-21K-163-4152861-00

PATIENT
  Age: 52 Year
  Sex: Female
  Weight: 56.750 kg

DRUGS (3)
  1. HUMIRA [Suspect]
     Active Substance: ADALIMUMAB
     Indication: Crohn^s disease
     Dosage: CITRATE FREE
     Route: 058
     Dates: start: 2013
  2. MODERNA COVID-19 VACCINE [Concomitant]
     Active Substance: CX-024414
     Indication: COVID-19 immunisation
     Route: 030
     Dates: start: 20210113, end: 20210113
  3. MODERNA COVID-19 VACCINE [Concomitant]
     Active Substance: CX-024414
     Route: 030
     Dates: start: 20210210, end: 20210210

REACTIONS (3)
  - Large intestinal stenosis [Recovered/Resolved]
  - Dyspepsia [Recovered/Resolved]
  - Physical product label issue [Not Recovered/Not Resolved]

NARRATIVE: CASE EVENT DATE: 20200201
